FAERS Safety Report 17953023 (Version 1)
Quarter: 2020Q2

REPORT INFORMATION
  Report Type: Spontaneous
  Country: US (occurrence: US)
  Receive Date: 20200627
  Receipt Date: 20200627
  Transmission Date: 20200714
  Serious: No
  Sender: FDA-Public Use
  Company Number: US-ASTRAZENECA-2020SE65562

PATIENT
  Sex: Male
  Weight: 122 kg

DRUGS (2)
  1. JARDIAN [Concomitant]
     Indication: DIABETES MELLITUS
  2. BYDUREON BCISE [Suspect]
     Active Substance: EXENATIDE
     Indication: GLUCOSE TOLERANCE IMPAIRED
     Route: 065

REACTIONS (2)
  - Injection site nodule [Unknown]
  - Device issue [Unknown]
